FAERS Safety Report 6049068-X (Version None)
Quarter: 2009Q1

REPORT INFORMATION
  Report Type: 
  Country: None (occurrence: None)
  Receive Date: 20090123
  Receipt Date: 20090112
  Transmission Date: 20090719
  Serious: Yes (Death, Other)
  Sender: FDA-Public Use
  Company Number: US-ROCHE-608436

PATIENT
  Age: 61 Year
  Sex: Female

DRUGS (10)
  1. DIAZEPAM [Suspect]
     Indication: DRUG USE FOR UNKNOWN INDICATION
     Dosage: ROUTE: INGESTION AND DERMAL
     Route: 065
  2. DIAZEPAM [Suspect]
     Route: 065
  3. FENTANYL CITRATE [Suspect]
     Indication: DRUG USE FOR UNKNOWN INDICATION
     Dosage: ROUTE: INGESTION AND DERMAL
     Route: 065
  4. FENTANYL CITRATE [Suspect]
     Route: 065
  5. QUETIAPINE FUMARATE [Suspect]
     Indication: DRUG USE FOR UNKNOWN INDICATION
     Dosage: ROUTE: INGESTION AND DERMAL
     Route: 065
  6. QUETIAPINE FUMARATE [Suspect]
     Route: 065
  7. LITHIUM CARBONATE [Suspect]
     Indication: DRUG USE FOR UNKNOWN INDICATION
     Dosage: ROUTE: INGESTION AND DERMAL
     Route: 065
  8. LITHIUM CARBONATE [Suspect]
     Route: 065
  9. METHADONE HCL [Suspect]
     Indication: DRUG USE FOR UNKNOWN INDICATION
     Dosage: ROUTE: INGESTION AND DERMAL
     Route: 065
  10. METHADONE HCL [Suspect]
     Route: 065

REACTIONS (3)
  - CARDIAC ARREST [None]
  - COMPLETED SUICIDE [None]
  - RESPIRATORY ARREST [None]
